FAERS Safety Report 8850165 (Version 1)
Quarter: 2012Q4

REPORT INFORMATION
  Report Type: 
  Country: US (occurrence: US)
  Receive Date: 20121019
  Receipt Date: 20121019
  Transmission Date: 20130627
  Serious: Yes (Death, Hospitalization)
  Sender: FDA-Public Use
  Company Number: US-GLAXOSMITHKLINE-A0998014A

PATIENT
  Age: 76 Year
  Sex: Male
  Weight: 88.2 kg

DRUGS (14)
  1. VENTOLIN [Suspect]
     Indication: PRODUCT USED FOR UNKNOWN INDICATION
     Dosage: 2PUFF As required
     Route: 065
     Dates: start: 20120531
  2. ADVAIR [Suspect]
     Indication: PRODUCT USED FOR UNKNOWN INDICATION
     Dosage: 1PUFF Per day
     Route: 055
     Dates: start: 20120531
  3. ASPIRIN [Suspect]
     Indication: PRODUCT USED FOR UNKNOWN INDICATION
     Dosage: 325MG Per day
     Route: 048
     Dates: start: 20120531
  4. FINASTERIDE [Suspect]
     Indication: PRODUCT USED FOR UNKNOWN INDICATION
     Dosage: 5MG Per day
     Route: 048
     Dates: start: 20120621
  5. XOPENEX [Suspect]
     Indication: PRODUCT USED FOR UNKNOWN INDICATION
     Dosage: 1AMP Four times per day
     Route: 055
     Dates: start: 20120705
  6. IMURAN [Suspect]
     Indication: PRODUCT USED FOR UNKNOWN INDICATION
     Dosage: 50MG Per day
     Route: 048
     Dates: start: 20120531
  7. PREDNISONE [Suspect]
     Indication: PRODUCT USED FOR UNKNOWN INDICATION
     Dosage: 10MG Per day
     Route: 048
     Dates: start: 20120531
  8. RAPAFLO [Suspect]
     Indication: BENIGN PROSTATIC HYPERPLASIA
     Dosage: 8MG Per day
     Route: 048
     Dates: start: 20120621, end: 20120729
  9. LOSARTAN POTASSIUM [Suspect]
     Indication: PRODUCT USED FOR UNKNOWN INDICATION
     Dosage: 100MG Per day
     Route: 048
     Dates: start: 20120531
  10. LOVASTATIN [Suspect]
     Indication: PRODUCT USED FOR UNKNOWN INDICATION
     Dosage: 80MG Per day
     Route: 048
     Dates: start: 20100831
  11. METFORMIN HCL [Suspect]
     Indication: PRODUCT USED FOR UNKNOWN INDICATION
     Dosage: 1000MG Twice per day
     Route: 048
     Dates: start: 20100831
  12. METOPROLOL [Suspect]
     Indication: PRODUCT USED FOR UNKNOWN INDICATION
     Dosage: 50MG Twice per day
     Route: 048
     Dates: start: 20120221
  13. HUMALOG MIX50/50 [Suspect]
     Indication: PRODUCT USED FOR UNKNOWN INDICATION
     Dosage: 35UNIT Twice per day
     Route: 058
     Dates: start: 20120621
  14. OXYGEN [Concomitant]

REACTIONS (13)
  - Death [Fatal]
  - Respiratory failure [Unknown]
  - Hypoxia [Unknown]
  - Cardiac arrest [Unknown]
  - Electrocardiogram T wave inversion [Unknown]
  - Atrial fibrillation [Unknown]
  - Bundle branch block right [Unknown]
  - QRS axis abnormal [Unknown]
  - Bundle branch block left [Unknown]
  - Brain natriuretic peptide increased [Unknown]
  - International normalised ratio increased [Unknown]
  - Cardiomegaly [Unknown]
  - Lung infiltration [Unknown]
